FAERS Safety Report 25548912 (Version 1)
Quarter: 2025Q3

REPORT INFORMATION
  Report Type: Spontaneous
  Country: US (occurrence: US)
  Receive Date: 20250714
  Receipt Date: 20250714
  Transmission Date: 20251020
  Serious: No
  Sender: BAYER HEALTHCARE LLC
  Company Number: US-BAYER-2025A091361

PATIENT
  Age: 83 Year
  Sex: Female

DRUGS (1)
  1. MIRALAX [Suspect]
     Active Substance: POLYETHYLENE GLYCOL 3350
     Indication: Colonoscopy
     Dosage: MIX 7 DOSES OF MIRALAX WITH 32 OZ OF GATORADE. DRINK 8 OZ EVERY 15 MINUTES.
     Route: 048
     Dates: start: 20250709, end: 20250709

REACTIONS (2)
  - Product use in unapproved indication [Unknown]
  - Increased dose administered [Unknown]

NARRATIVE: CASE EVENT DATE: 20250709
